FAERS Safety Report 9244720 (Version 1)
Quarter: 2013Q2

REPORT INFORMATION
  Report Type: Report from Study
  Country: CA (occurrence: CA)
  Receive Date: 20130422
  Receipt Date: 20130422
  Transmission Date: 20140414
  Serious: Yes (Other)
  Sender: FDA-Public Use
  Company Number: CA-JNJFOC-20130408363

PATIENT
  Sex: Female
  Weight: 129.15 kg

DRUGS (3)
  1. REMICADE [Suspect]
     Indication: CROHN^S DISEASE
     Route: 042
  2. VIMOVO [Concomitant]
     Route: 065
  3. HYDROMORPHONE [Concomitant]
     Route: 065

REACTIONS (4)
  - Asthma [Unknown]
  - Acne [Not Recovered/Not Resolved]
  - Alopecia [Unknown]
  - Chills [Not Recovered/Not Resolved]
